FAERS Safety Report 7571674-1 (Version None)
Quarter: 2011Q2

REPORT INFORMATION
  Report Type: 
  Country: None (occurrence: None)
  Receive Date: 20110624
  Receipt Date: 20110616
  Transmission Date: 20111010
  Serious: Yes (Hospitalization)
  Sender: FDA-Public Use
  Company Number: AU-MERCK-1105USA02346

PATIENT
  Sex: Male

DRUGS (1)
  1. ZETIA [Suspect]
     Indication: BLOOD CHOLESTEROL DECREASED
     Route: 048

REACTIONS (11)
  - VISUAL ACUITY REDUCED [None]
  - TRANSIENT ISCHAEMIC ATTACK [None]
  - MUSCLE TIGHTNESS [None]
  - PAIN IN EXTREMITY [None]
  - NECK PAIN [None]
  - MYALGIA [None]
  - FEELING ABNORMAL [None]
  - HYPERTENSION [None]
  - MUSCULOSKELETAL PAIN [None]
  - MUSCLE SPASMS [None]
  - AMAUROSIS FUGAX [None]
